FAERS Safety Report 5092994-9 (Version None)
Quarter: 2006Q3

REPORT INFORMATION
  Report Type: 
  Country: None (occurrence: None)
  Receive Date: 20060830
  Receipt Date: 20060821
  Transmission Date: 20061208
  Serious: Yes (Hospitalization)
  Sender: FDA-Public Use
  Company Number: FR-GLAXOSMITHKLINE-B0435754A

PATIENT
  Age: 78 Year
  Sex: Male
  Weight: 90 kg

DRUGS (5)
  1. AUGMENTIN '125' [Suspect]
     Indication: ABDOMINAL PAIN
     Route: 042
     Dates: start: 20060515, end: 20060601
  2. CORDARONE [Suspect]
     Route: 048
  3. PREVISCAN [Suspect]
     Route: 048
  4. CARDENSIEL [Suspect]
     Route: 048
  5. AERIUS [Suspect]
     Route: 048

REACTIONS (12)
  - CHOLESTASIS [None]
  - CHROMATURIA [None]
  - HEPATIC STEATOSIS [None]
  - HEPATITIS [None]
  - HEPATOCELLULAR DAMAGE [None]
  - HYPOALBUMINAEMIA [None]
  - JAUNDICE [None]
  - NEPHROTIC SYNDROME [None]
  - PROTEINURIA [None]
  - PRURITUS GENERALISED [None]
  - RENAL DISORDER [None]
  - RENAL FAILURE [None]
